FAERS Safety Report 7032106-5 (Version None)
Quarter: 2010Q4

REPORT INFORMATION
  Report Type: 
  Country: None (occurrence: None)
  Receive Date: 20101007
  Receipt Date: 20091214
  Transmission Date: 20110411
  Serious: Yes (Death)
  Sender: FDA-Public Use
  Company Number: IN-BRISTOL-MYERS SQUIBB COMPANY-14846950

PATIENT
  Age: 61 Year
  Sex: Male
  Weight: 45 kg

DRUGS (3)
  1. CETUXIMAB [Suspect]
     Indication: NON-SMALL CELL LUNG CANCER
     Dosage: INTERRUPTED ON 09OCT RESUMED ON 10OCT09
     Route: 042
     Dates: start: 20090808
  2. CISPLATIN [Suspect]
     Indication: NON-SMALL CELL LUNG CANCER
     Dosage: RECENT INF: 18SEP09; INTERRUPTED ON 09OCT09;ON DAY 1 + 8 OF 21 DAY CYCLE
     Route: 042
     Dates: start: 20090808
  3. GEMCITABINE [Suspect]
     Indication: NON-SMALL CELL LUNG CANCER
     Dosage: RECENT INF: 25SEP09; INTERRUPTED ON 09OCT09; ON DAY 1 + 8 OF 21 DAY CYCLE
     Route: 042
     Dates: start: 20090808

REACTIONS (1)
  - MYOCARDIAL INFARCTION [None]
